FAERS Safety Report 21098805 (Version 1)
Quarter: 2022Q3

REPORT INFORMATION
  Report Type: Spontaneous
  Country: US (occurrence: None)
  Receive Date: 20220718
  Receipt Date: 20220718
  Transmission Date: 20221027
  Serious: Yes (Disabling)
  Sender: FDA-Public Use
  Company Number: None

PATIENT
  Age: 63 Year
  Sex: Male
  Weight: 119.7 kg

DRUGS (12)
  1. TRELEGY ELLIPTA [Suspect]
     Active Substance: FLUTICASONE FUROATE\UMECLIDINIUM BROMIDE\VILANTEROL TRIFENATATE
     Indication: Product used for unknown indication
     Dosage: OTHER QUANTITY : 1 INHALATION(S);?FREQUENCY : AT BEDTIME;?
     Route: 055
  2. ALLOPURINOL [Concomitant]
     Active Substance: ALLOPURINOL
  3. FENOFIBRATE [Concomitant]
  4. ROSUVASTATIN [Concomitant]
     Active Substance: ROSUVASTATIN
  5. Irebesartan [Concomitant]
  6. WARFARIN [Concomitant]
     Active Substance: WARFARIN
  7. MAGNESIUM [Concomitant]
     Active Substance: MAGNESIUM
  8. ACETAMINOPHEN [Concomitant]
  9. DEXTROMETHORPHAN [Concomitant]
  10. GUAIFENESIN [Concomitant]
     Active Substance: GUAIFENESIN
  11. PHENYLEPHRINE HCL [Concomitant]
     Active Substance: PHENYLEPHRINE HYDROCHLORIDE
  12. APPLE CIDER VINEGAR [Concomitant]
     Active Substance: APPLE CIDER VINEGAR

REACTIONS (5)
  - Dysphonia [None]
  - Muscle spasms [None]
  - Muscle spasms [None]
  - Musculoskeletal disorder [None]
  - Insomnia [None]

NARRATIVE: CASE EVENT DATE: 20220716
